FAERS Safety Report 5324310-9 (Version None)
Quarter: 2007Q2

REPORT INFORMATION
  Report Type: 
  Country: None (occurrence: None)
  Receive Date: 20070514
  Receipt Date: 20070502
  Transmission Date: 20071010
  Serious: Yes (Life-Threatening)
  Sender: FDA-Public Use
  Company Number: FR-BOEHRINGER INGELHEIM PHARMACEUTICALS, INC.-2007-DE-02657GD

PATIENT
  Age: 63 Year
  Sex: Female

DRUGS (9)
  1. RANITIDINE [Suspect]
     Indication: PREMEDICATION
     Route: 042
  2. RANITIDINE [Suspect]
     Indication: CHEMOTHERAPY
  3. DEXCHLORPHENIRAMINE [Suspect]
     Indication: PREMEDICATION
     Route: 042
  4. DEXCHLORPHENIRAMINE [Suspect]
     Indication: CHEMOTHERAPY
  5. METHYLPREDNISOLONE 16MG TAB [Concomitant]
     Indication: PREMEDICATION
     Route: 042
  6. METHYLPREDNISOLONE 16MG TAB [Concomitant]
     Indication: CHEMOTHERAPY
  7. GRANISETRON [Concomitant]
     Route: 048
  8. PACLITAXEL [Concomitant]
     Indication: ENDOMETRIAL CANCER
     Dates: start: 20020101
  9. CARBOPLATIN [Concomitant]
     Indication: ENDOMETRIAL CANCER
     Dates: start: 20020101

REACTIONS (6)
  - ANAPHYLACTIC REACTION [None]
  - DISCOMFORT [None]
  - LOSS OF CONSCIOUSNESS [None]
  - RADIAL PULSE ABNORMAL [None]
  - RASH [None]
  - RESPIRATORY ARREST [None]
